FAERS Safety Report 4277172-5 (Version None)
Quarter: 2004Q1

REPORT INFORMATION
  Report Type: 
  Country: None (occurrence: None)
  Receive Date: 20040120
  Receipt Date: 19970929
  Transmission Date: 20041129
  Serious: No
  Sender: FDA-Public Use
  Company Number: 7170

PATIENT
  Age: 66 Year
  Sex: Female

DRUGS (2)
  1. METHOTREXATE [Suspect]
     Indication: RHEUMATOID ARTHRITIS
     Dosage: 10 MG WEEKLY
     Dates: start: 19950101
  2. PREDNISOLONE [Concomitant]

REACTIONS (1)
  - AMNESIA [None]
